FAERS Safety Report 8904462 (Version 1)
Quarter: 2012Q4

REPORT INFORMATION
  Report Type: 
  Country: US (occurrence: US)
  Receive Date: 20121110
  Receipt Date: 20121110
  Transmission Date: 20130627
  Serious: No
  Sender: FDA-Public Use
  Company Number: US-009507513-1211USA003507

PATIENT
  Age: 27 Year
  Sex: Female
  Weight: 58.96 kg

DRUGS (1)
  1. NUVARING [Suspect]
     Indication: CONTRACEPTION
     Dosage: 3 weeks in one week ring free week
     Route: 067
     Dates: start: 201210

REACTIONS (1)
  - Metrorrhagia [Unknown]
